FAERS Safety Report 9745731 (Version 1)
Quarter: 2013Q4

REPORT INFORMATION
  Report Type: Spontaneous
  Country: US (occurrence: US)
  Receive Date: 20131211
  Receipt Date: 20131211
  Transmission Date: 20140711
  Serious: Yes (Hospitalization)
  Sender: FDA-Public Use
  Company Number: US-ASTELLAS-2013US012694

PATIENT
  Age: 67 Year
  Sex: Female

DRUGS (1)
  1. PROGRAF [Suspect]
     Indication: LUNG TRANSPLANT
     Dosage: 3.5 MG IN AM AND 4 MG IN PM
     Dates: start: 20120216

REACTIONS (2)
  - Off label use [Unknown]
  - Hospitalisation [Unknown]
